FAERS Safety Report 5993043-8 (Version None)
Quarter: 2008Q4

REPORT INFORMATION
  Report Type: 
  Country: None (occurrence: None)
  Receive Date: 20081212
  Receipt Date: 20081209
  Transmission Date: 20090506
  Serious: Yes (Hospitalization)
  Sender: FDA-Public Use
  Company Number: JP-BRISTOL-MYERS SQUIBB COMPANY-14430995

PATIENT
  Age: 65 Year
  Sex: Female
  Weight: 51 kg

DRUGS (12)
  1. ERBITUX [Suspect]
     Indication: RECTAL CANCER
     Dosage: 2ND INF:250MG/M2 ON 05NOV08 3RD INF:12NOV08 4TH INF:19NOV08
     Route: 042
     Dates: start: 20081029
  2. IRINOTECAN HCL [Suspect]
     Indication: RECTAL CANCER
     Dosage: FORM = INJ. 120MG/M2 FROM 12NOV08
     Route: 042
     Dates: start: 20081029
  3. RESTAMIN [Concomitant]
     Indication: PREMEDICATION
     Dosage: FORM = TABS. RESTAMIN KOWA
     Route: 048
  4. DECADRON [Concomitant]
     Indication: PREMEDICATION
     Dosage: FORM = INJ. UNK DATE STARTED 8MG IV, 4MG FROM 30OCT08 VIA ORAL
     Route: 048
  5. ONDANSETRON [Concomitant]
     Indication: PROPHYLAXIS OF NAUSEA AND VOMITING
     Dosage: FORM = INJ
     Route: 042
     Dates: start: 20081029
  6. KYTRIL [Concomitant]
     Indication: PROPHYLAXIS OF NAUSEA AND VOMITING
     Dosage: GRANISETRON KR TABS
     Route: 048
     Dates: start: 20081030
  7. RABEPRAZOLE SODIUM [Concomitant]
     Dosage: FORM = TABS
     Route: 048
  8. ALOSENN [Concomitant]
     Route: 048
  9. OXYCONTIN [Concomitant]
     Dosage: FORM = TABS
     Route: 048
  10. LOXONIN [Concomitant]
     Dosage: 3 DOSAGEFORM = 3 TABS. FORM = TABS
     Route: 048
  11. MAGLAX [Concomitant]
     Dosage: 3 DOSAGEFORM = 3TABS. FORM = TABS
     Route: 048
  12. DAI-KENCHU-TO [Concomitant]
     Route: 048

REACTIONS (2)
  - ANOREXIA [None]
  - DIARRHOEA [None]
